FAERS Safety Report 5281129-5 (Version None)
Quarter: 2007Q1

REPORT INFORMATION
  Report Type: 
  Country: None (occurrence: None)
  Receive Date: 20070323
  Receipt Date: 20070314
  Transmission Date: 20070707
  Serious: Yes (Other)
  Sender: FDA-Public Use
  Company Number: 2007SP004986

PATIENT
  Age: 4 Month
  Sex: Male

DRUGS (1)
  1. BETAMETHASONE [Suspect]
     Indication: BRONCHIOLITIS
     Dosage: 70 GTT;QD;PO
     Route: 048
     Dates: start: 20070304

REACTIONS (5)
  - ACCIDENT [None]
  - HYPOTONIA [None]
  - PALLOR [None]
  - PERIPHERAL COLDNESS [None]
  - SYNCOPE [None]
